FAERS Safety Report 12684960 (Version 3)
Quarter: 2016Q3

REPORT INFORMATION
  Report Type: Spontaneous
  Country: US (occurrence: US)
  Receive Date: 20160825
  Receipt Date: 20160927
  Transmission Date: 20161109
  Serious: Yes (Hospitalization, Other)
  Sender: FDA-Public Use
  Company Number: US-PFIZER INC-2016397609

PATIENT
  Age: 68 Year
  Sex: Male
  Weight: 93 kg

DRUGS (14)
  1. ACCUNEB [Concomitant]
     Active Substance: ALBUTEROL SULFATE
     Dosage: 0.63 MG/3 ML
  2. CLARINEX-D 12 HOUR [Concomitant]
     Active Substance: DESLORATADINE\PSEUDOEPHEDRINE SULFATE
     Dosage: TAKE 1 TABLET TWO TIMES A DAY
     Route: 048
  3. LETAIRIS [Concomitant]
     Active Substance: AMBRISENTAN
     Indication: PULMONARY HYPERTENSION
     Dosage: 10 MG, DAILY, (TAKE 1 TABLET (10 MG TOTAL) DAILY)
     Route: 048
     Dates: start: 201507
  4. TAMSULOSIN [Concomitant]
     Active Substance: TAMSULOSIN
     Indication: PROSTATIC DISORDER
     Dosage: 0.4 MG, 1X/DAY; 0.4MG CAPSULE ONCE A DAY
     Route: 048
     Dates: start: 201507
  5. SYMBICORT [Concomitant]
     Active Substance: BUDESONIDE\FORMOTEROL FUMARATE DIHYDRATE
     Dosage: (BUDESONIDE: 160 MCG; FORMOTEROL FUMARATE: 4.5 MCG)/ACTUATION INHALER)
  6. FLOMAX [Concomitant]
     Active Substance: TAMSULOSIN HYDROCHLORIDE
     Dosage: 0.4 MG, DAILY, TAKE 1 CAPSULE (0.4 MG TOTAL) NIGHTLY
     Route: 048
  7. SPIRIVA [Concomitant]
     Active Substance: TIOTROPIUM BROMIDE MONOHYDRATE
     Indication: PULMONARY HYPERTENSION
     Dosage: 18 UG, 1X/DAY
     Route: 055
     Dates: start: 201507
  8. ASPIRIN 81 [Concomitant]
     Active Substance: ASPIRIN
     Dosage: 81 MG, DAILY, [TAKE 1 TABLET (81 MG TOTAL)]
     Route: 048
  9. LEVAQUIN [Concomitant]
     Active Substance: LEVOFLOXACIN
     Dosage: 750 MG, DAILY, [TAKE 1 TABLET (750 MG TOTAL) DAILY]
     Route: 048
  10. REVATIO [Suspect]
     Active Substance: SILDENAFIL CITRATE
     Indication: PULMONARY ARTERIAL HYPERTENSION
     Dosage: 80 MG, 3X/DAY (4 TABLETS THREE TIMES A DAY)
     Route: 048
     Dates: start: 20150801
  11. LIPITOR [Concomitant]
     Active Substance: ATORVASTATIN CALCIUM
     Dosage: 20 MG, UNK
  12. ATORVASTATIN CALCIUM. [Concomitant]
     Active Substance: ATORVASTATIN CALCIUM
     Indication: BLOOD CHOLESTEROL
     Dosage: 20 MG, 1X/DAY
     Route: 048
     Dates: start: 201507
  13. CARDIZEM CD [Concomitant]
     Active Substance: DILTIAZEM HYDROCHLORIDE
     Dosage: 120 MG, DAILY, [TAKE 1 CAPSULE (120 MG TOTAL) DAILY]
     Route: 048
  14. LASIX [Concomitant]
     Active Substance: FUROSEMIDE
     Dosage: TAKE 1 TABLET (20 MG TOTAL) TWO TIMES A DAY
     Route: 048

REACTIONS (9)
  - Pneumonia [Recovered/Resolved]
  - Dyspnoea [Unknown]
  - Musculoskeletal chest pain [Unknown]
  - Hypotension [Unknown]
  - Chest pain [Unknown]
  - Prescribed overdose [Unknown]
  - Acute respiratory failure [Unknown]
  - Atrial fibrillation [Unknown]
  - Atrial flutter [Unknown]

NARRATIVE: CASE EVENT DATE: 20150801
